FAERS Safety Report 7543226-0 (Version None)
Quarter: 2011Q2

REPORT INFORMATION
  Report Type: 
  Country: None (occurrence: None)
  Receive Date: 20110524
  Receipt Date: 20110228
  Transmission Date: 20111010
  Serious: No
  Sender: FDA-Public Use
  Company Number: 020320

PATIENT
  Sex: Male

DRUGS (2)
  1. CIMZIA [Suspect]
  2. CIMZIA [Suspect]
     Indication: CROHN'S DISEASE
     Dosage: (400 MG 1X/28 DAYS SUBCUTANEOUS), (SUBCUTANEOUS)
     Route: 058
     Dates: start: 20090518, end: 20101221

REACTIONS (4)
  - RESPIRATORY DISORDER [None]
  - INSOMNIA [None]
  - FREQUENT BOWEL MOVEMENTS [None]
  - MALAISE [None]
